FAERS Safety Report 5781087-0 (Version None)
Quarter: 2008Q2

REPORT INFORMATION
  Report Type: 
  Country: None (occurrence: None)
  Receive Date: 20080618
  Receipt Date: 20080404
  Transmission Date: 20081010
  Serious: No
  Sender: FDA-Public Use
  Company Number: US-1165766

PATIENT
  Sex: Female

DRUGS (1)
  1. TRAVATAN Z [Suspect]
     Dosage: OPHTHALMIC
     Route: 047

REACTIONS (4)
  - LACRIMATION INCREASED [None]
  - OEDEMA PERIPHERAL [None]
  - RHINORRHOEA [None]
  - SNEEZING [None]
